FAERS Safety Report 18435919 (Version 1)
Quarter: 2020Q4

REPORT INFORMATION
  Report Type: Spontaneous
  Country: US (occurrence: US)
  Receive Date: 20201028
  Receipt Date: 20201028
  Transmission Date: 20210114
  Serious: Yes (Hospitalization)
  Sender: FDA-Public Use
  Company Number: None

PATIENT
  Sex: Female

DRUGS (1)
  1. COSENTYX [Suspect]
     Active Substance: SECUKINUMAB
     Indication: PSORIASIS
     Dosage: ?          OTHER DOSE:2 PENS;?
     Route: 058
     Dates: start: 20181103

REACTIONS (3)
  - Thyroid operation [None]
  - Nephrolithiasis [None]
  - Therapy interrupted [None]
